FAERS Safety Report 7603143-4 (Version None)
Quarter: 2011Q3

REPORT INFORMATION
  Report Type: 
  Country: None (occurrence: None)
  Receive Date: 20110712
  Receipt Date: 20110705
  Transmission Date: 20111222
  Serious: Yes (Other)
  Sender: FDA-Public Use
  Company Number: MX-SANOFI-AVENTIS-2011SA042497

PATIENT
  Age: 66 Year
  Sex: Male

DRUGS (2)
  1. LORATADINE [Interacting]
     Route: 048
  2. DRONEDARONE HCL [Suspect]
     Route: 065
     Dates: start: 20110101, end: 20110601

REACTIONS (4)
  - DRUG INTERACTION [None]
  - TORSADE DE POINTES [None]
  - PALPITATIONS [None]
  - SYNCOPE [None]
